FAERS Safety Report 11768789 (Version 2)
Quarter: 2016Q2

REPORT INFORMATION
  Report Type: Spontaneous
  Country: US (occurrence: US)
  Receive Date: 20151123
  Receipt Date: 20160412
  Transmission Date: 20160815
  Serious: Yes (Hospitalization, Other)
  Sender: FDA-Public Use
  Company Number: US-PFIZER INC-2015386182

PATIENT
  Age: 28 Year
  Sex: Female
  Weight: 144.22 kg

DRUGS (13)
  1. LYRICA [Suspect]
     Active Substance: PREGABALIN
     Indication: FIBROMYALGIA
     Dosage: 150 MG, 2X/DAY
     Route: 048
     Dates: start: 20151021
  2. DIPHENHYDRAMINE. [Concomitant]
     Active Substance: DIPHENHYDRAMINE
     Dosage: 50 MG, EVERY 4 HRS
     Route: 048
  3. LOPERAMIDE [Concomitant]
     Active Substance: LOPERAMIDE
     Dosage: 2 MG, AS NEEDED
  4. METHOCARBAMOL. [Concomitant]
     Active Substance: METHOCARBAMOL
     Dosage: 750 MG, AS NEEDED (1 TABLET(S) EVERY 4 HOURS BY ORAL ROUTE AS NEEDED FOR 30 DAYS)
     Route: 048
  5. PAROXETINE. [Concomitant]
     Active Substance: PAROXETINE
     Dosage: 40 MG, 1X/DAY
  6. PEPTO-BISMOL [Concomitant]
     Active Substance: BISMUTH SUBSALICYLATE
     Dosage: 262 MG, UNK
     Route: 048
  7. LEVOTHYROXINE. [Concomitant]
     Active Substance: LEVOTHYROXINE
     Dosage: 88 UG, DAILY
     Route: 048
  8. LYRICA [Suspect]
     Active Substance: PREGABALIN
     Dosage: 75 MG, UNK
  9. ACIDOPHILUS PROBIOTIC [Concomitant]
     Dosage: 10 MG, DAILY
     Route: 048
  10. BIOTIN [Concomitant]
     Active Substance: BIOTIN
     Dosage: 5 MG, UNK
     Route: 048
  11. EMOQUETTE [Concomitant]
     Active Substance: DESOGESTREL\ETHINYL ESTRADIOL
     Dosage: 1 DF, 1X/DAY
  12. LYRICA [Suspect]
     Active Substance: PREGABALIN
     Dosage: 150 MG, 3X/DAY (150MG CAPSULE 1 BY MOUTH 3 TIMES A DAY)
  13. GABAPENTIN. [Concomitant]
     Active Substance: GABAPENTIN
     Dosage: 300 MG, 1 CAPSULE(S) EVERY 6 HOURS)
     Route: 048
     Dates: end: 20151012

REACTIONS (14)
  - Balance disorder [Unknown]
  - Dry skin [Not Recovered/Not Resolved]
  - Weight decreased [Unknown]
  - Weight increased [Not Recovered/Not Resolved]
  - Influenza [Unknown]
  - Pain [Not Recovered/Not Resolved]
  - Blister [Not Recovered/Not Resolved]
  - Gait disturbance [Unknown]
  - Seizure [Unknown]
  - Pleurisy [Unknown]
  - Syncope [Unknown]
  - Malaise [Unknown]
  - Tongue biting [Unknown]
  - Vomiting [Unknown]

NARRATIVE: CASE EVENT DATE: 20160313
